FAERS Safety Report 5818284-1 (Version None)
Quarter: 2008Q3

REPORT INFORMATION
  Report Type: 
  Country: None (occurrence: None)
  Receive Date: 20080716
  Receipt Date: 20080703
  Transmission Date: 20090109
  Serious: Yes (Hospitalization)
  Sender: FDA-Public Use
  Company Number: 2008BI017078

PATIENT
  Age: 39 Year
  Sex: Female
  Weight: 100 kg

DRUGS (1)
  1. AVONEX [Suspect]
     Indication: MULTIPLE SCLEROSIS RELAPSE
     Dosage: 30 UG; QW; IM
     Route: 030
     Dates: start: 20080301

REACTIONS (1)
  - DIVERTICULITIS [None]
